FAERS Safety Report 20702761 (Version 1)
Quarter: 2022Q2

REPORT INFORMATION
  Report Type: Spontaneous
  Country: ES (occurrence: ES)
  Receive Date: 20220412
  Receipt Date: 20220412
  Transmission Date: 20220721
  Serious: Yes (Other)
  Sender: FDA-Public Use
  Company Number: ES-ALLERGAN-2211836US

PATIENT
  Sex: Male

DRUGS (2)
  1. DALBAVANCIN HYDROCHLORIDE [Suspect]
     Active Substance: DALBAVANCIN HYDROCHLORIDE
     Indication: Product used for unknown indication
     Dosage: 1500 MG
  2. DALBAVANCIN HYDROCHLORIDE [Suspect]
     Active Substance: DALBAVANCIN HYDROCHLORIDE
     Dosage: 1500 MG

REACTIONS (2)
  - Toxic skin eruption [Unknown]
  - Stevens-Johnson syndrome [Unknown]
